FAERS Safety Report 8530475-8 (Version None)
Quarter: 2012Q3

REPORT INFORMATION
  Report Type: 
  Country: None (occurrence: None)
  Receive Date: 20120723
  Receipt Date: 20120718
  Transmission Date: 20120928
  Serious: Yes (Hospitalization)
  Sender: FDA-Public Use
  Company Number: US-PFIZER INC-2012049940

PATIENT
  Sex: Female
  Weight: 64.4 kg

DRUGS (11)
  1. CITRACAL PLUS [Concomitant]
     Indication: MENOPAUSE
     Dosage: UNK
     Route: 048
     Dates: start: 20110624
  2. ESTRACE [Concomitant]
     Indication: MENOPAUSE
     Dosage: 0.1 MG/G, 2X/WEEK (1 GRAM VAG HS TWICE A WEEK)
     Route: 061
     Dates: start: 20111115
  3. TIKOSYN [Suspect]
     Indication: ATRIAL FIBRILLATION
     Dosage: 250 MG, 2X/DAY (EVERY 12 HOURS)
     Route: 048
     Dates: start: 20100419, end: 20110101
  4. ALPRAZOLAM [Concomitant]
     Dosage: 0.25 MG, DAILY
     Route: 048
     Dates: start: 20110623
  5. ASCORBIC ACID [Concomitant]
     Dosage: UNK, TAKE 1 TABLET DAILY
     Dates: start: 20070913
  6. ESTRADIOL [Concomitant]
     Indication: MENOPAUSE
     Dosage: 0.5 MG, DAILY
     Route: 048
     Dates: start: 20110623
  7. ZOLPIDEM TARTRATE [Concomitant]
     Indication: SLEEP DISORDER
  8. MULTI-VITAMINS [Concomitant]
     Dosage: 1 TABLET DAILY
     Route: 048
     Dates: start: 20090127
  9. EXTRA STRENGTH TYLENOL [Concomitant]
     Dosage: UNK, (TAKE 1 TABLET EVERY 4 TO 6 HOURS AS NEEDED)
  10. ASPIRIN [Concomitant]
     Indication: ATRIAL FIBRILLATION
     Dosage: 81 MG, DAILY AS DIRECTED
     Route: 048
     Dates: start: 20090415
  11. ZOLPIDEM TARTRATE [Concomitant]
     Indication: INSOMNIA
     Dosage: 12.5 MG, TAKE 1 TABLET AT BEDTIME AS NEEDED
     Route: 048
     Dates: start: 20120329

REACTIONS (1)
  - ARRHYTHMIA [None]
